FAERS Safety Report 25863915 (Version 1)
Quarter: 2025Q3

REPORT INFORMATION
  Report Type: Spontaneous
  Country: US (occurrence: US)
  Receive Date: 20250930
  Receipt Date: 20250930
  Transmission Date: 20251020
  Serious: No
  Sender: SECURA BIO
  Company Number: US-SECURA BIO, INC.-SECUR-2025-US002077

PATIENT
  Sex: Female

DRUGS (1)
  1. COPIKTRA [Suspect]
     Active Substance: DUVELISIB
     Indication: Peripheral T-cell lymphoma unspecified
     Dosage: 15 MILLIGRAM, QD
     Route: 048
     Dates: start: 202209

REACTIONS (4)
  - Melanocytic naevus [Unknown]
  - Fatigue [Unknown]
  - Product use in unapproved indication [Unknown]
  - Product use issue [Unknown]
